FAERS Safety Report 10065414 (Version 1)
Quarter: 2014Q2

REPORT INFORMATION
  Report Type: Spontaneous
  Country: FR (occurrence: FR)
  Receive Date: 20140408
  Receipt Date: 20140408
  Transmission Date: 20141212
  Serious: Yes (Hospitalization, Other)
  Sender: FDA-Public Use
  Company Number: FR-ASTRAZENECA-2014SE23429

PATIENT
  Age: 29597 Day
  Sex: Female

DRUGS (6)
  1. INEXIUM [Suspect]
     Route: 048
  2. XARELTO [Interacting]
     Route: 048
     Dates: end: 20131220
  3. ATORVASTATINE [Interacting]
     Route: 065
  4. CORDARONE [Interacting]
     Route: 065
  5. LEVOTHYROX [Concomitant]
  6. LASILIX [Concomitant]

REACTIONS (5)
  - Drug interaction [Unknown]
  - Petechiae [Recovering/Resolving]
  - Purpura [Recovering/Resolving]
  - Renal failure [Unknown]
  - Haemoglobin decreased [Unknown]
